FAERS Safety Report 24133929 (Version 2)
Quarter: 2025Q1

REPORT INFORMATION
  Report Type: Report from Study
  Country: CA (occurrence: CA)
  Receive Date: 20240724
  Receipt Date: 20250219
  Transmission Date: 20250408
  Serious: Yes (Hospitalization, Other)
  Sender: EMD SERONO INC
  Company Number: CA-Merck Healthcare KGaA-2024033969

PATIENT
  Sex: Male

DRUGS (1)
  1. SAIZEN [Suspect]
     Active Substance: SOMATROPIN
     Indication: Product used for unknown indication
     Dates: start: 20240323

REACTIONS (5)
  - Cardiac disorder [Unknown]
  - Hypervolaemia [Unknown]
  - Renal disorder [Unknown]
  - Decreased appetite [Unknown]
  - Renal transplant [Unknown]
